FAERS Safety Report 16928516 (Version 1)
Quarter: 2019Q4

REPORT INFORMATION
  Report Type: Spontaneous
  Country: FR (occurrence: FR)
  Receive Date: 20191017
  Receipt Date: 20191017
  Transmission Date: 20200122
  Serious: Yes (Hospitalization)
  Sender: FDA-Public Use
  Company Number: FR-CHEPLA-C20192500

PATIENT
  Age: 76 Year
  Sex: Male
  Weight: 60 kg

DRUGS (4)
  1. ZOPHREN [Suspect]
     Active Substance: ONDANSETRON
     Indication: PROPHYLAXIS OF NAUSEA AND VOMITING
     Route: 041
     Dates: start: 20190822, end: 20190824
  2. ETOPOPHOS [Suspect]
     Active Substance: ETOPOSIDE PHOSPHATE
     Indication: NEOPLASM MALIGNANT
     Route: 041
     Dates: start: 20190822, end: 20190824
  3. CARBOPLATIN. [Concomitant]
     Active Substance: CARBOPLATIN
     Indication: NEOPLASM MALIGNANT
     Route: 041
     Dates: start: 20190822, end: 20190822
  4. DEXAMETHASONE. [Suspect]
     Active Substance: DEXAMETHASONE
     Indication: PREMEDICATION
     Route: 041
     Dates: start: 20190822, end: 20190824

REACTIONS (3)
  - Hypotension [Recovered/Resolved]
  - Malaise [Recovered/Resolved]
  - Flushing [Recovered/Resolved]

NARRATIVE: CASE EVENT DATE: 20190824
